FAERS Safety Report 5579108-3 (Version None)
Quarter: 2007Q4

REPORT INFORMATION
  Report Type: 
  Country: None (occurrence: None)
  Receive Date: 20071228
  Receipt Date: 20071228
  Transmission Date: 20080405
  Serious: Yes (Hospitalization)
  Sender: FDA-Public Use
  Company Number: None

PATIENT
  Age: 50 Year
  Sex: Female
  Weight: 46 kg

DRUGS (8)
  1. GOODY'S HEADACHE POWDER [Suspect]
     Indication: HEADACHE
     Dates: start: 20071216, end: 20071219
  2. ASPIRIN [Concomitant]
  3. BENICAR [Concomitant]
  4. CELEXA [Concomitant]
  5. FLONASE [Concomitant]
  6. LIPITOR [Concomitant]
  7. METOPROLOL TARTRATE [Concomitant]
  8. MOBIC [Concomitant]

REACTIONS (2)
  - GASTRIC ULCER [None]
  - PERFORATED ULCER [None]
